FAERS Safety Report 4322962-3 (Version None)
Quarter: 2004Q1

REPORT INFORMATION
  Report Type: 
  Country: None (occurrence: None)
  Receive Date: 20040323
  Receipt Date: 20040323
  Transmission Date: 20041129
  Serious: No
  Sender: FDA-Public Use
  Company Number: None

PATIENT
  Age: 70 Year
  Sex: Male
  Weight: 77.6 kg

DRUGS (5)
  1. TAXOTERE [Suspect]
     Indication: PROSTATE CANCER
     Dosage: 140 MG IV
     Route: 042
     Dates: start: 20040224
  2. ZOFRAN [Concomitant]
  3. DECADRON [Concomitant]
  4. TAGAMET [Concomitant]
  5. BENADRYL [Concomitant]

REACTIONS (6)
  - ERYTHEMA [None]
  - INFUSION SITE REACTION [None]
  - MOBILITY DECREASED [None]
  - OEDEMA PERIPHERAL [None]
  - PAIN IN EXTREMITY [None]
  - SKIN DESQUAMATION [None]
